FAERS Safety Report 9306151 (Version 1)
Quarter: 2013Q2

REPORT INFORMATION
  Report Type: Spontaneous
  Country: US (occurrence: None)
  Receive Date: 20130516
  Receipt Date: 20130516
  Transmission Date: 20140414
  Serious: Yes (Other)
  Sender: FDA-Public Use
  Company Number: 2012030888

PATIENT
  Sex: Male
  Weight: 92.53 kg

DRUGS (23)
  1. NITROGLYCERIN (GLYCERYL TRINITRATE) [Concomitant]
  2. PULMICROT (BUDESONIDE) [Concomitant]
  3. EPI-PEN (EPINEPHRINE) [Concomitant]
  4. LMX (LIDOCAINE) [Concomitant]
  5. CIPRO (CIPROFLOXACIN) [Concomitant]
  6. TOBRAMYCIN (TOMBRAMYCIN) [Concomitant]
  7. CHERATUSSIN (NUCOCHEM PEDIATRIC) [Concomitant]
  8. HIZENTRA (IMMUNOGLOBULIN HUMAN NORMAL) [Suspect]
     Indication: IMMUNODEFICIENCY COMMON VARIABLE
     Dosage: 5 SITES OVER 2 HOURS SUBCUTANEOUS
     Route: 050
     Dates: start: 20111221, end: 20111221
  9. DIOVAN (VALSARTAN) [Concomitant]
  10. IMDUR ER (ISOSORBIDE MONONITRATE) [Concomitant]
  11. ATENOLOL (ATENOLOL) [Concomitant]
  12. GABAPENTIN (GABAPENTIN) [Concomitant]
  13. METFORMIN HCL (METFORMIN HYDROCHLORIDE) [Concomitant]
  14. TERAZOSIN (TERAZOSIN) [Concomitant]
  15. LEXAPRO (ESCITALOPRAM OXALATE) [Concomitant]
  16. SPIRIVA (TIOTROPIUM BROMIDE) [Concomitant]
  17. ASPIRIN (ACETYLSALICYCLIC ACID) [Concomitant]
  18. PREVACID (LANSOPRAZOLE) [Concomitant]
  19. VYTORIN (INEGY) [Concomitant]
  20. PLAVIX (CLOPIDOGREL) [Concomitant]
  21. ACIDOPHILUS (LACTOBACILLUS ACIDOPHILUS) [Concomitant]
  22. PERFORMIST (FORMOTEROL) [Concomitant]
  23. CARDIZEM (DILITIAZEM) [Concomitant]

REACTIONS (4)
  - Pruritus [None]
  - Rash [None]
  - Cellulitis [None]
  - Blood glucose increased [None]
